FAERS Safety Report 21367130 (Version 7)
Quarter: 2025Q2

REPORT INFORMATION
  Report Type: Spontaneous
  Country: US (occurrence: US)
  Receive Date: 20220923
  Receipt Date: 20250514
  Transmission Date: 20250717
  Serious: Yes (Hospitalization)
  Sender: SANOFI AVENTIS
  Company Number: US-SA-SAC20220915000735

PATIENT
  Age: 50 Year
  Sex: Female

DRUGS (25)
  1. DUPIXENT [Suspect]
     Active Substance: DUPILUMAB
     Indication: Asthma
     Dosage: 300 MG, QOW
     Route: 058
     Dates: start: 20220720
  2. ALBUTEROL SULFATE [Concomitant]
     Active Substance: ALBUTEROL SULFATE
  3. AZITHROMYCIN [Concomitant]
     Active Substance: AZITHROMYCIN
  4. BREZTRI [Concomitant]
     Active Substance: BUDESONIDE\FORMOTEROL\GLYCOPYRROLATE
  5. EPINEPHRINE [Concomitant]
     Active Substance: EPINEPHRINE
  6. ESCITALOPRAM [Concomitant]
     Active Substance: ESCITALOPRAM OXALATE
  7. LISINOPRIL [Concomitant]
     Active Substance: LISINOPRIL
  8. LOSARTAN POTASSIUM [Concomitant]
     Active Substance: LOSARTAN POTASSIUM
  9. MONTELUKAST [Concomitant]
     Active Substance: MONTELUKAST
  10. PREDNISONE [Concomitant]
     Active Substance: PREDNISONE
  11. SYMBICORT [Concomitant]
     Active Substance: BUDESONIDE\FORMOTEROL FUMARATE DIHYDRATE
  12. TOLTERODINE [Concomitant]
     Active Substance: TOLTERODINE
  13. PAXLOVID [Concomitant]
     Active Substance: NIRMATRELVIR\RITONAVIR
  14. DILTIAZEM [Concomitant]
     Active Substance: DILTIAZEM
  15. LEVOTHYROXINE [Concomitant]
     Active Substance: LEVOTHYROXINE
  16. THEO-24 [Concomitant]
     Active Substance: THEOPHYLLINE ANHYDROUS
  17. AMLODIPINE [Concomitant]
     Active Substance: AMLODIPINE BESYLATE
  18. THEOBROMINE [Concomitant]
     Active Substance: THEOBROMINE
  19. ALBUTEROL [Concomitant]
     Active Substance: ALBUTEROL
  20. LEVOTHYROXINE [Concomitant]
     Active Substance: LEVOTHYROXINE
  21. LOSARTAN [Concomitant]
     Active Substance: LOSARTAN
  22. FUROSEMIDE [Concomitant]
     Active Substance: FUROSEMIDE
  23. ROSUVASTATIN [Concomitant]
     Active Substance: ROSUVASTATIN
  24. POTASSIUM CHLORIDE [Concomitant]
     Active Substance: POTASSIUM CHLORIDE
  25. PREDNISONE [Concomitant]
     Active Substance: PREDNISONE

REACTIONS (5)
  - Hospitalisation [Unknown]
  - Impaired quality of life [Not Recovered/Not Resolved]
  - Asthma [Not Recovered/Not Resolved]
  - Therapeutic response decreased [Not Recovered/Not Resolved]
  - Surgery [Unknown]
